FAERS Safety Report 7466115-9 (Version None)
Quarter: 2011Q2

REPORT INFORMATION
  Report Type: 
  Country: None (occurrence: None)
  Receive Date: 20110505
  Receipt Date: 20110505
  Transmission Date: 20111010
  Serious: Yes (Hospitalization)
  Sender: FDA-Public Use
  Company Number: None

PATIENT
  Sex: Male
  Weight: 72.9 kg

DRUGS (8)
  1. MORPHINE [Concomitant]
  2. OXYCODONE HCL [Concomitant]
  3. DEXAMETHASONE [Concomitant]
  4. SORBITOL [Concomitant]
  5. NEXAVAR [Suspect]
     Indication: HEPATIC NEOPLASM MALIGNANT
     Dosage: 200 MG QD PO
     Route: 048
     Dates: start: 20110420, end: 20110501
  6. ADVAIR DISKUS 100/50 [Concomitant]
  7. SPIRIVA [Concomitant]
  8. SENOKOT [Concomitant]

REACTIONS (1)
  - RESPIRATORY FAILURE [None]
